FAERS Safety Report 5495948-3 (Version None)
Quarter: 2007Q4

REPORT INFORMATION
  Report Type: 
  Country: None (occurrence: None)
  Receive Date: 20071025
  Receipt Date: 20070102
  Transmission Date: 20080405
  Serious: No
  Sender: FDA-Public Use
  Company Number: A0633214A

PATIENT
  Age: 83 Year
  Sex: Female

DRUGS (4)
  1. ADVAIR DISKUS 100/50 [Suspect]
     Indication: ASTHMA
     Dosage: 1PUFF TWICE PER DAY
     Route: 055
     Dates: start: 20061201
  2. TOPROL-XL [Concomitant]
  3. NORVASC [Concomitant]
  4. BENICAR [Concomitant]

REACTIONS (2)
  - GLOSSODYNIA [None]
  - MUSCULAR WEAKNESS [None]
